FAERS Safety Report 8553230-1 (Version None)
Quarter: 2012Q3

REPORT INFORMATION
  Report Type: 
  Country: None (occurrence: None)
  Receive Date: 20120731
  Receipt Date: 20120720
  Transmission Date: 20120928
  Serious: Yes (Hospitalization, Other)
  Sender: FDA-Public Use
  Company Number: BR-SANOFI-AVENTIS-2012SA052003

PATIENT
  Age: 87 Year
  Sex: Female

DRUGS (3)
  1. AUTOPEN 24 [Suspect]
     Indication: DEVICE THERAPY
     Dates: start: 20100101
  2. LANTUS [Suspect]
     Indication: TYPE 2 DIABETES MELLITUS
     Route: 058
     Dates: start: 20100101
  3. DIOVAN [Concomitant]
     Indication: HYPERTENSION
     Route: 048
     Dates: start: 20090101

REACTIONS (6)
  - DELIRIUM [None]
  - PARKINSON'S DISEASE [None]
  - HYPERGLYCAEMIA [None]
  - DEMENTIA ALZHEIMER'S TYPE [None]
  - HYPOGLYCAEMIA [None]
  - PNEUMONIA [None]
